FAERS Safety Report 5852900-3 (Version None)
Quarter: 2008Q3

REPORT INFORMATION
  Report Type: 
  Country: None (occurrence: None)
  Receive Date: 20080815
  Receipt Date: 20080117
  Transmission Date: 20090109
  Serious: Yes (Hospitalization)
  Sender: FDA-Public Use
  Company Number: 08H-163-0313752-00

PATIENT
  Age: 36 Year
  Sex: Female
  Weight: 71 kg

DRUGS (13)
  1. VANCOMYCIN HYDROCHLORIDE [Suspect]
     Indication: PYREXIA
     Dosage: ONCE, INTRAVENOUS
     Route: 042
     Dates: start: 20080108, end: 20080108
  2. VANCOMYCIN HYDROCHLORIDE [Suspect]
     Indication: PYREXIA
     Dosage: ONCE, INTRAVENOUS
     Route: 042
     Dates: start: 20080108, end: 20080108
  3. CEFAZOLIN [Suspect]
     Indication: PRURITUS
     Dosage: 2 GM, ONCE, INTRAVENOUS
     Route: 042
     Dates: start: 20080108, end: 20080108
  4. CARBAMAZEPINE [Concomitant]
  5. RENOVITE [Concomitant]
  6. HYDROXYCHLORA SULFATE [Concomitant]
  7. WARFARIN SODIUM [Concomitant]
  8. PHOSLO [Concomitant]
  9. BENADRYL [Concomitant]
  10. EPOGEN [Concomitant]
  11. VENOFER [Concomitant]
  12. ZEMPLAR [Concomitant]
  13. HEPARIN 1000 U/CC(HEPARIN) [Concomitant]

REACTIONS (3)
  - MEDICATION ERROR [None]
  - PRURITUS [None]
  - SKIN EXFOLIATION [None]
